FAERS Safety Report 8756158 (Version 2)
Quarter: 2013Q1

REPORT INFORMATION
  Report Type: Spontaneous
  Country: US (occurrence: None)
  Receive Date: 20120814
  Receipt Date: 20130308
  Transmission Date: 20140127
  Serious: Yes (Other)
  Sender: FDA-Public Use
  Company Number: 2012P1051100

PATIENT
  Age: 74 Year
  Sex: Female
  Weight: 88.45 kg

DRUGS (3)
  1. LOSARTAN POTASSIUM TABLETS USP 50 MG [Suspect]
     Indication: HYPERTENSION
     Route: 048
     Dates: start: 20111220, end: 201204
  2. LEVOTHYROXINE [Concomitant]
  3. VITAMIN D [Concomitant]

REACTIONS (7)
  - Dizziness [None]
  - Dizziness [None]
  - Hypotension [None]
  - Fall [None]
  - Vision blurred [None]
  - Contusion [None]
  - Macular fibrosis [None]
